FAERS Safety Report 22045069 (Version 4)
Quarter: 2024Q2

REPORT INFORMATION
  Report Type: Spontaneous
  Country: US (occurrence: US)
  Receive Date: 20230228
  Receipt Date: 20240424
  Transmission Date: 20240715
  Serious: Yes (Other)
  Sender: FDA-Public Use
  Company Number: US-PFIZER INC-PV202300033479

PATIENT
  Age: 57 Year
  Sex: Female

DRUGS (10)
  1. IBRANCE [Suspect]
     Active Substance: PALBOCICLIB
     Indication: Breast cancer metastatic
     Dosage: 100 MG
     Dates: start: 20210830
  2. IBRANCE [Suspect]
     Active Substance: PALBOCICLIB
     Dosage: 75 MG, CYCLIC (1 TAB, 1X/DAY X21 DAYS THEN 7 DAYS OFF EVERY 28 DAYS)
     Route: 048
     Dates: start: 20230213
  3. IBRANCE [Suspect]
     Active Substance: PALBOCICLIB
     Dosage: 75 MG, ONCE A DAY X21 DAYS THEN 14 DAYS OFF
     Route: 048
  4. LETROZOLE [Concomitant]
     Active Substance: LETROZOLE
     Dosage: 2.5 MG
  5. TAPAZOLE [Concomitant]
     Active Substance: METHIMAZOLE
     Dosage: 10 MG
  6. LEXAPRO [Concomitant]
     Active Substance: ESCITALOPRAM OXALATE
     Dosage: UNK
  7. LUPRON [Concomitant]
     Active Substance: LEUPROLIDE ACETATE
     Indication: Anxiety
     Dosage: UNK
  8. LUPRON [Concomitant]
     Active Substance: LEUPROLIDE ACETATE
     Indication: Depression
  9. LUPRON [Concomitant]
     Active Substance: LEUPROLIDE ACETATE
     Indication: Neutropenia
  10. LUPRON [Concomitant]
     Active Substance: LEUPROLIDE ACETATE
     Indication: Chemotherapy

REACTIONS (9)
  - Neutropenia [Unknown]
  - Second primary malignancy [Unknown]
  - Meningioma [Unknown]
  - Osteoarthritis [Unknown]
  - Thyroid mass [Unknown]
  - Oesophagitis [Unknown]
  - Osteolysis [Unknown]
  - Influenza [Not Recovered/Not Resolved]
  - Off label use [Unknown]
